FAERS Safety Report 8955241 (Version 1)
Quarter: 2012Q4

REPORT INFORMATION
  Report Type: 
  Country: US (occurrence: US)
  Receive Date: 20121210
  Receipt Date: 20121210
  Transmission Date: 20130627
  Serious: No
  Sender: FDA-Public Use
  Company Number: US-PFIZER INC-2012308451

PATIENT
  Sex: Female

DRUGS (11)
  1. NEURONTIN [Suspect]
     Indication: DIABETIC NEUROPATHY
     Dosage: UNK
  2. HYDROXYZINE [Concomitant]
     Dosage: UNK
  3. BUPROPION [Concomitant]
     Dosage: UNK
  4. ALPRAZOLAM [Concomitant]
     Dosage: UNK
  5. ATENOLOL [Concomitant]
     Dosage: UNK
  6. LOSARTAN [Concomitant]
     Dosage: UNK
  7. FUROSEMIDE [Concomitant]
     Dosage: UNK
  8. RANITIDINE [Concomitant]
     Dosage: UNK
  9. OMEPRAZOLE [Concomitant]
     Dosage: UNK
  10. METFORMIN [Concomitant]
     Dosage: UNK
  11. NAPROXEN [Concomitant]
     Dosage: UNK

REACTIONS (6)
  - Hypoaesthesia [Unknown]
  - Pain in extremity [Unknown]
  - Drug administration error [Unknown]
  - Pain [Unknown]
  - Burning sensation [Unknown]
  - Drug ineffective [Unknown]
